FAERS Safety Report 26151112 (Version 1)
Quarter: 2025Q4

REPORT INFORMATION
  Report Type: Spontaneous
  Country: US (occurrence: None)
  Receive Date: 20251211
  Receipt Date: 20251211
  Transmission Date: 20260117
  Serious: No
  Sender: FDA-CTU
  Company Number: None

PATIENT
  Age: 78 Year
  Sex: Male
  Weight: 102 kg

DRUGS (1)
  1. CAPECITABINE [Suspect]
     Active Substance: CAPECITABINE
     Dosage: FREQUENCY : TWICE A DAY;
     Route: 048
     Dates: start: 20251111

REACTIONS (6)
  - Nausea [None]
  - Diarrhoea [None]
  - Dysphagia [None]
  - Abdominal hernia [None]
  - Small intestinal obstruction [None]
  - Haematemesis [None]

NARRATIVE: CASE EVENT DATE: 20251204
